FAERS Safety Report 12633373 (Version 2)
Quarter: 2016Q3

REPORT INFORMATION
  Report Type: Spontaneous
  Country: US (occurrence: US)
  Receive Date: 20160808
  Receipt Date: 20160808
  Transmission Date: 20161109
  Serious: No
  Sender: FDA-Public Use
  Company Number: US-BEH-2016060694

PATIENT
  Sex: Female
  Weight: 77 kg

DRUGS (24)
  1. LIDOCAINE. [Concomitant]
     Active Substance: LIDOCAINE
  2. OYSTER SHELL CALCIUM+D3 [Concomitant]
  3. CLARITHROMYCIN. [Concomitant]
     Active Substance: CLARITHROMYCIN
  4. HIZENTRA [Suspect]
     Active Substance: HUMAN IMMUNOGLOBULIN G
     Indication: IMMUNODEFICIENCY COMMON VARIABLE
     Route: 058
  5. LISINOPRIL. [Concomitant]
     Active Substance: LISINOPRIL
  6. PEPCID [Concomitant]
     Active Substance: FAMOTIDINE
  7. FOLIC ACID. [Concomitant]
     Active Substance: FOLIC ACID
  8. ZEGERID [Concomitant]
     Active Substance: OMEPRAZOLE\SODIUM BICARBONATE
  9. ELLURA [Concomitant]
     Active Substance: DIETARY SUPPLEMENT
  10. ZETIA [Concomitant]
     Active Substance: EZETIMIBE
  11. DIPHENHYDRAMINE. [Concomitant]
     Active Substance: DIPHENHYDRAMINE
  12. GLUCOSAMINE-CHONDROITIN-MSM [Concomitant]
  13. EPIPEN [Concomitant]
     Active Substance: EPINEPHRINE
  14. SINGULAIR [Concomitant]
     Active Substance: MONTELUKAST SODIUM
  15. VAGIFEM [Concomitant]
     Active Substance: ESTRADIOL
  16. VITAMIN B12 [Concomitant]
     Active Substance: CYANOCOBALAMIN
  17. LOVAZA [Concomitant]
     Active Substance: OMEGA-3-ACID ETHYL ESTERS
  18. VITAMIN C [Concomitant]
     Active Substance: ASCORBIC ACID
  19. VITAMIN D3 [Concomitant]
     Active Substance: CHOLECALCIFEROL
  20. ACETAMINOPHEN. [Concomitant]
     Active Substance: ACETAMINOPHEN
  21. VERAPAMIL [Concomitant]
     Active Substance: VERAPAMIL HYDROCHLORIDE
  22. RESTASIS [Concomitant]
     Active Substance: CYCLOSPORINE
  23. ASPIRIN. [Concomitant]
     Active Substance: ASPIRIN
  24. MULTIVITAMINS [Concomitant]
     Active Substance: VITAMINS

REACTIONS (1)
  - Infusion site haemorrhage [Unknown]
